FAERS Safety Report 17016734 (Version 1)
Quarter: 2019Q4

REPORT INFORMATION
  Report Type: Spontaneous
  Country: US (occurrence: US)
  Receive Date: 20191110
  Receipt Date: 20191110
  Transmission Date: 20200122
  Serious: Yes (Disabling)
  Sender: FDA-Public Use
  Company Number: None

PATIENT
  Age: 64 Year
  Sex: Female
  Weight: 43.83 kg

DRUGS (9)
  1. NASACORT [Concomitant]
     Active Substance: TRIAMCINOLONE ACETONIDE
  2. VITAMIN B12 [Concomitant]
     Active Substance: CYANOCOBALAMIN
  3. SYNTHROID [Concomitant]
     Active Substance: LEVOTHYROXINE SODIUM
  4. INTRARIOSA [Concomitant]
  5. RABEPRAZOLE [Concomitant]
     Active Substance: RABEPRAZOLE
  6. HYDROXYZINE HCL 10 MG TABLET [Suspect]
     Active Substance: HYDROXYZINE HYDROCHLORIDE
     Indication: CYSTITIS INTERSTITIAL
     Dosage: ?          QUANTITY:1 TABLET(S);?
     Route: 048
     Dates: start: 20190720, end: 20191105
  7. FOLIC ACID. [Concomitant]
     Active Substance: FOLIC ACID
  8. VITAMIN B COMPLEX [Concomitant]
     Active Substance: CYANOCOBALAMIN\DEXPANTHENOL\NIACINAMIDE\PYRIDOXINE HYDROCHLORIDE\RIBOFLAVIN 5^-PHOSPHATE SODIUM\THIAMINE HYDROCHLORIDE\VITAMIN B COMPLEX
  9. ALAWAY EYE DROPS [Concomitant]

REACTIONS (7)
  - Balance disorder [None]
  - Dysphagia [None]
  - Dizziness [None]
  - Urticaria [None]
  - Food interaction [None]
  - Cystitis interstitial [None]
  - Oesophageal motility disorder [None]

NARRATIVE: CASE EVENT DATE: 20191104
